FAERS Safety Report 7072059-7 (Version None)
Quarter: 2010Q4

REPORT INFORMATION
  Report Type: 
  Country: None (occurrence: None)
  Receive Date: 20101029
  Receipt Date: 20101026
  Transmission Date: 20110411
  Serious: Yes (Life-Threatening, Hospitalization)
  Sender: FDA-Public Use
  Company Number: PHHY2010JP65050

PATIENT

DRUGS (4)
  1. TEGRETOL [Suspect]
     Indication: EPILEPSY
     Dosage: 800 MG, QD
     Route: 048
     Dates: end: 20100928
  2. HYDANTOL [Concomitant]
     Indication: EPILEPSY
     Dosage: 300 MG, UNK
     Route: 048
  3. SENNOSIDE [Concomitant]
     Indication: CONSTIPATION
     Dosage: 36 MG, UNK
     Route: 048
  4. GLIMICRON [Concomitant]
     Indication: DIABETES MELLITUS
     Dosage: 80 MGL, UNK
     Route: 048
     Dates: end: 20100928

REACTIONS (8)
  - ALTERED STATE OF CONSCIOUSNESS [None]
  - DIZZINESS [None]
  - ELECTROCARDIOGRAM T WAVE ABNORMAL [None]
  - HEART RATE DECREASED [None]
  - HYPONATRAEMIA [None]
  - INAPPROPRIATE ANTIDIURETIC HORMONE SECRETION [None]
  - NODAL RHYTHM [None]
  - ROAD TRAFFIC ACCIDENT [None]
